FAERS Safety Report 10758605 (Version 1)
Quarter: 2015Q1

REPORT INFORMATION
  Report Type: Spontaneous
  Country: BR (occurrence: BR)
  Receive Date: 20150203
  Receipt Date: 20150203
  Transmission Date: 20150721
  Serious: Yes (Other)
  Sender: FDA-Public Use
  Company Number: BR-ABBVIE-15P-020-1339132-00

PATIENT
  Sex: Female
  Weight: 62 kg

DRUGS (3)
  1. HUMIRA [Suspect]
     Active Substance: ADALIMUMAB
     Indication: PSORIATIC ARTHROPATHY
     Route: 058
     Dates: end: 201312
  2. MATERNA 1.60 [Concomitant]
     Indication: PREGNANCY
     Route: 048
     Dates: start: 20140119
  3. UTROGESTAN [Concomitant]
     Active Substance: PROGESTERONE
     Indication: PREGNANCY
     Route: 067
     Dates: start: 20141229

REACTIONS (2)
  - Shortened cervix [Unknown]
  - Premature separation of placenta [Recovered/Resolved]
